FAERS Safety Report 15393857 (Version 1)
Quarter: 2018Q3

REPORT INFORMATION
  Report Type: Spontaneous
  Country: TR (occurrence: TR)
  Receive Date: 20180917
  Receipt Date: 20180917
  Transmission Date: 20181010
  Serious: Yes (Other)
  Sender: FDA-Public Use
  Company Number: TR-ANIPHARMA-2018-TR-000052

PATIENT
  Age: 30 Year
  Sex: Male

DRUGS (1)
  1. DEXAMETHASONE (NON?SPECIFIC) [Suspect]
     Active Substance: DEXAMETHASONE
     Indication: DEXAMETHASONE SUPPRESSION TEST
     Dosage: 1 MG

REACTIONS (2)
  - Hypopituitarism [Unknown]
  - Pituitary haemorrhage [Unknown]
